FAERS Safety Report 23298431 (Version 1)
Quarter: 2023Q4

REPORT INFORMATION
  Report Type: Spontaneous
  Country: US (occurrence: US)
  Receive Date: 20231214
  Receipt Date: 20231214
  Transmission Date: 20240109
  Serious: No
  Sender: FDA-Public Use
  Company Number: US-LEO Pharma-365874

PATIENT
  Sex: Male

DRUGS (1)
  1. ADBRY [Suspect]
     Active Substance: TRALOKINUMAB-LDRM
     Indication: Dermatitis atopic

REACTIONS (12)
  - Decreased appetite [Unknown]
  - Paraesthesia [Unknown]
  - Dizziness [Unknown]
  - Erythema [Unknown]
  - Joint swelling [Unknown]
  - Pruritus [Unknown]
  - Gastrointestinal disorder [Unknown]
  - Swelling [Unknown]
  - Nausea [Unknown]
  - Joint swelling [Unknown]
  - Urticaria [Unknown]
  - Walking disability [Unknown]
